FAERS Safety Report 12230048 (Version 1)
Quarter: 2016Q2

REPORT INFORMATION
  Report Type: Spontaneous
  Country: US (occurrence: US)
  Receive Date: 20160401
  Receipt Date: 20160401
  Transmission Date: 20160815
  Serious: No
  Sender: FDA-Public Use
  Company Number: US-TEVA-647598USA

PATIENT
  Age: 22 Year
  Sex: Female

DRUGS (1)
  1. COPAXONE [Suspect]
     Active Substance: GLATIRAMER ACETATE
     Indication: MULTIPLE SCLEROSIS
     Dosage: 17.1429 MILLIGRAM DAILY;
     Dates: start: 20160105

REACTIONS (9)
  - Flushing [Unknown]
  - Nuclear magnetic resonance imaging abnormal [Unknown]
  - Balance disorder [Unknown]
  - Incontinence [Unknown]
  - Dizziness [Unknown]
  - Chest discomfort [Unknown]
  - Immediate post-injection reaction [Unknown]
  - Cognitive disorder [Unknown]
  - Palpitations [Unknown]

NARRATIVE: CASE EVENT DATE: 201603
